FAERS Safety Report 6510059-3 (Version None)
Quarter: 2009Q4

REPORT INFORMATION
  Report Type: 
  Country: None (occurrence: None)
  Receive Date: 20091222
  Receipt Date: 20090908
  Transmission Date: 20100525
  Serious: No
  Sender: FDA-Public Use
  Company Number: US-BAUSCH-2009BL004690

PATIENT
  Age: 69 Year
  Sex: Male

DRUGS (5)
  1. BESIVANCE [Suspect]
     Indication: CORNEAL ABRASION
     Route: 047
     Dates: start: 20090825, end: 20090828
  2. BESIVANCE [Suspect]
     Indication: OFF LABEL USE
     Route: 047
     Dates: start: 20090825, end: 20090828
  3. SYNTHROID [Concomitant]
  4. DIOVAN [Concomitant]
     Indication: HYPERTENSION
  5. ASPIRIN [Concomitant]

REACTIONS (5)
  - CORNEAL INFILTRATES [None]
  - EYE IRRITATION [None]
  - EYE PAIN [None]
  - LACRIMATION INCREASED [None]
  - OCULAR HYPERAEMIA [None]
